FAERS Safety Report 15108296 (Version 1)
Quarter: 2018Q3

REPORT INFORMATION
  Report Type: Report from Study
  Country: CO (occurrence: CO)
  Receive Date: 20180705
  Receipt Date: 20180705
  Transmission Date: 20181010
  Serious: Yes (Hospitalization, Other)
  Sender: FDA-Public Use
  Company Number: CO-UCBSA-2018028893

PATIENT
  Age: 72 Year
  Sex: Female
  Weight: 65 kg

DRUGS (3)
  1. LACOSAMIDE. [Suspect]
     Active Substance: LACOSAMIDE
     Indication: EPILEPSY
     Dosage: 100 MG, 3X/DAY (TID)
     Route: 048
     Dates: start: 20140509, end: 20180615
  2. HIOSCINA BUTIL BROMURO [Concomitant]
     Indication: MUSCLE SPASMS
     Dosage: 10 MG, 3X/DAY (TID)
     Route: 048
     Dates: start: 20180609
  3. BISACODYL. [Concomitant]
     Active Substance: BISACODYL
     Indication: LAXATIVE SUPPORTIVE CARE
     Dosage: 5 MG, ONCE DAILY (QD)
     Route: 048
     Dates: start: 20180609

REACTIONS (3)
  - Intervertebral disc protrusion [Recovering/Resolving]
  - Intestinal obstruction [Recovering/Resolving]
  - Off label use [Unknown]

NARRATIVE: CASE EVENT DATE: 20140509
